FAERS Safety Report 9039641 (Version 1)
Quarter: 2013Q1

REPORT INFORMATION
  Report Type: Report from Study
  Country: US (occurrence: US)
  Receive Date: 20130129
  Receipt Date: 20130129
  Transmission Date: 20140127
  Serious: No
  Sender: FDA-Public Use
  Company Number: US-ABBOTT-12P-163-0918520-00

PATIENT
  Age: 40 Year
  Sex: Female

DRUGS (18)
  1. HUMIRA 40 MG/0.8 ML PEN [Suspect]
     Indication: CROHN^S DISEASE
     Dosage: LOADING DOSE
     Dates: start: 20120321
  2. HUMIRA 40 MG/0.8 ML PEN [Suspect]
     Dosage: SECOND DOSE
  3. HUMIRA 40 MG/0.8 ML PEN [Suspect]
  4. METHOTREXATE [Concomitant]
     Indication: CROHN^S DISEASE
     Dosage: EVERY TUESDAY
  5. PAMINE [Concomitant]
     Indication: DIARRHOEA
  6. PAMINE [Concomitant]
     Indication: CROHN^S DISEASE
  7. VSL3 [Concomitant]
     Indication: CROHN^S DISEASE
  8. PAMELOR [Concomitant]
     Indication: DEPRESSION
     Dosage: AT BED TIME
  9. REMERON [Concomitant]
     Indication: DEPRESSION
     Dosage: AT BED TIME
  10. KLONOPIN [Concomitant]
     Indication: INSOMNIA
     Dosage: 2MG X 2 TABS AT BED TIME=4MG
  11. KLONOPIN [Concomitant]
     Indication: NERVOUS SYSTEM DISORDER
  12. FOLIC ACID [Concomitant]
     Indication: PRODUCT USED FOR UNKNOWN INDICATION
     Dosage: DAILY EXCEPT TUESDAYS
  13. POTASSIUM [Concomitant]
     Indication: FATIGUE
     Dosage: TWICE DAILY; AS NEEDED
  14. BACLOFEN [Concomitant]
     Indication: PRODUCT USED FOR UNKNOWN INDICATION
  15. PHENERGAN [Concomitant]
     Indication: NAUSEA
  16. SCOPOLAMINE [Concomitant]
     Indication: NAUSEA
     Dosage: PATCH EVERY 72 HOURS AS NEEDED
  17. PERCOCET [Concomitant]
     Indication: PAIN
     Dosage: 7.5/325 AS NEEDED
  18. DILAUDID [Concomitant]
     Indication: PAIN

REACTIONS (22)
  - Neck pain [Not Recovered/Not Resolved]
  - Nasal discharge discolouration [Not Recovered/Not Resolved]
  - Sinusitis [Not Recovered/Not Resolved]
  - Pain [Unknown]
  - Abdominal pain upper [Unknown]
  - Oropharyngeal pain [Unknown]
  - Rhinorrhoea [Unknown]
  - Lymphadenopathy [Unknown]
  - Nasal mucosal discolouration [Unknown]
  - Drug ineffective [Unknown]
  - Dizziness [Unknown]
  - Dizziness [Unknown]
  - Influenza like illness [Unknown]
  - Dysphagia [Unknown]
  - Hyperhidrosis [Unknown]
  - Injection site pain [Recovered/Resolved]
  - Fungal infection [Not Recovered/Not Resolved]
  - Nausea [Not Recovered/Not Resolved]
  - Memory impairment [Not Recovered/Not Resolved]
  - Migraine [Not Recovered/Not Resolved]
  - Sneezing [Not Recovered/Not Resolved]
  - Musculoskeletal discomfort [Not Recovered/Not Resolved]
